FAERS Safety Report 13745116 (Version 1)
Quarter: 2017Q3

REPORT INFORMATION
  Report Type: Spontaneous
  Country: US (occurrence: US)
  Receive Date: 20170711
  Receipt Date: 20170711
  Transmission Date: 20171127
  Serious: No
  Sender: FDA-Public Use
  Company Number: None

PATIENT
  Age: 60 Year
  Sex: Female
  Weight: 85.05 kg

DRUGS (18)
  1. PROGESTERONE. [Concomitant]
     Active Substance: PROGESTERONE
  2. HYDROXYZINE [Concomitant]
     Active Substance: HYDROXYZINE HYDROCHLORIDE
  3. XANAX [Concomitant]
     Active Substance: ALPRAZOLAM
  4. VITAMIN D [Concomitant]
     Active Substance: CHOLECALCIFEROL
  5. FLAXSEED [Concomitant]
     Active Substance: FLAX SEED
  6. PATADAY [Concomitant]
     Active Substance: OLOPATADINE HYDROCHLORIDE
  7. LEVOTHYROXINE. [Concomitant]
     Active Substance: LEVOTHYROXINE
  8. VIVELLE-DOT [Concomitant]
     Active Substance: ESTRADIOL
  9. MONTELUKAST [Concomitant]
     Active Substance: MONTELUKAST SODIUM
  10. FLUTICASONE. [Concomitant]
     Active Substance: FLUTICASONE
  11. VITAMIN B COMPLEX [Concomitant]
     Active Substance: CYANOCOBALAMIN\DEXPANTHENOL\NIACINAMIDE\PYRIDOXINE HYDROCHLORIDE\RIBOFLAVIN 5^-PHOSPHATE SODIUM\THIAMINE HYDROCHLORIDE\VITAMIN B COMPLEX
  12. CENTRUM [Concomitant]
     Active Substance: VITAMINS
  13. VITAMIN C [Concomitant]
     Active Substance: ASCORBIC ACID
  14. REPATHA [Suspect]
     Active Substance: EVOLOCUMAB
     Indication: HYPERLIPIDAEMIA
     Dosage: OTHER STRENGTH:MG;QUANTITY:3 INJECTION(S);OTHER FREQUENCY:TWICE/MO (3 TOTAL);OTHER ROUTE:SC INJECTION?
     Dates: start: 20170621, end: 20170705
  15. VENLAFAXINE [Concomitant]
     Active Substance: VENLAFAXINE HYDROCHLORIDE
  16. PANTOPRAZOLE [Concomitant]
     Active Substance: PANTOPRAZOLE
  17. OSEPHENA [Concomitant]
  18. MAGNESIUM GLYCINATE [Concomitant]
     Active Substance: MAGNESIUM GLYCINATE

REACTIONS (7)
  - Nausea [None]
  - Injection site pain [None]
  - Pharyngitis [None]
  - Cognitive disorder [None]
  - Rhinorrhoea [None]
  - Upper-airway cough syndrome [None]
  - Dizziness [None]

NARRATIVE: CASE EVENT DATE: 20170706
